FAERS Safety Report 14132610 (Version 2)
Quarter: 2018Q1

REPORT INFORMATION
  Report Type: Spontaneous
  Country: DE (occurrence: DE)
  Receive Date: 20171027
  Receipt Date: 20180315
  Transmission Date: 20180508
  Serious: Yes (Hospitalization)
  Sender: FDA-Public Use
  Company Number: DE-CIPLA LTD.-2017DE18899

PATIENT

DRUGS (11)
  1. BUPROPION. [Suspect]
     Active Substance: BUPROPION
     Indication: MAJOR DEPRESSION
     Dosage: 150 TO 300 MG
     Route: 065
  2. DOXEPIN [Suspect]
     Active Substance: DOXEPIN
     Indication: MAJOR DEPRESSION
     Dosage: 200 MG, ONCE OR TWICE A WEEK, EVERY 12 HOURS
     Route: 065
     Dates: start: 20150101, end: 20160101
  3. DOXEPIN [Suspect]
     Active Substance: DOXEPIN
     Dosage: UNK, ONCE OR TWICE A WEEK
     Route: 065
     Dates: start: 2015, end: 2016
  4. DOXEPIN [Suspect]
     Active Substance: DOXEPIN
     Dosage: ONCE OR TWICE A WEEK
     Route: 065
     Dates: start: 20060101, end: 20160101
  5. RAMIPRIL. [Concomitant]
     Active Substance: RAMIPRIL
     Indication: HYPERTENSION
     Dosage: 5 MG, UNK
     Route: 065
  6. SERTRALINE [Suspect]
     Active Substance: SERTRALINE HYDROCHLORIDE
     Indication: MAJOR DEPRESSION
     Dosage: 150 MG, UNK
     Route: 065
     Dates: start: 20160601
  7. SERTRALINE [Suspect]
     Active Substance: SERTRALINE HYDROCHLORIDE
     Dosage: 100 MG, UNK
     Route: 065
     Dates: start: 20160601
  8. DOXEPIN [Suspect]
     Active Substance: DOXEPIN
     Dosage: UNK
     Route: 065
     Dates: start: 20060101
  9. VENLAFAXINE [Suspect]
     Active Substance: VENLAFAXINE HYDROCHLORIDE
     Indication: MAJOR DEPRESSION
     Dosage: 150-300 MG
     Route: 065
     Dates: start: 20060101
  10. MELPERONE [Suspect]
     Active Substance: MELPERONE
     Indication: MAJOR DEPRESSION
     Dosage: 50 TO 100 MG
     Route: 065
  11. LITHIUM. [Concomitant]
     Active Substance: LITHIUM
     Indication: MAJOR DEPRESSION
     Dosage: 900 MG, UNK
     Route: 065
     Dates: start: 20060101

REACTIONS (9)
  - Sleep-related eating disorder [Recovering/Resolving]
  - Restless legs syndrome [Unknown]
  - Major depression [Unknown]
  - Sleep apnoea syndrome [Unknown]
  - Body mass index increased [Unknown]
  - Limb discomfort [Unknown]
  - Condition aggravated [Recovering/Resolving]
  - Abnormal behaviour [Unknown]
  - Insomnia [Unknown]
